FAERS Safety Report 8019422-5 (Version None)
Quarter: 2012Q1

REPORT INFORMATION
  Report Type: 
  Country: None (occurrence: None)
  Receive Date: 20120103
  Receipt Date: 20111226
  Transmission Date: 20120608
  Serious: Yes (Other)
  Sender: FDA-Public Use
  Company Number: PHHY2011JP112750

PATIENT
  Age: 8 Year
  Sex: Male

DRUGS (1)
  1. CARBAMAZEPINE [Suspect]

REACTIONS (1)
  - ATONIC SEIZURES [None]
